FAERS Safety Report 21721744 (Version 1)
Quarter: 2022Q4

REPORT INFORMATION
  Report Type: Spontaneous
  Country: US (occurrence: None)
  Receive Date: 20221212
  Receipt Date: 20221212
  Transmission Date: 20230113
  Serious: No
  Sender: FDA-Public Use
  Company Number: None

PATIENT

DRUGS (1)
  1. ALBUTEROL SULFATE [Suspect]
     Active Substance: ALBUTEROL SULFATE

REACTIONS (7)
  - Device defective [None]
  - Therapeutic product effect decreased [None]
  - Dyspnoea [None]
  - Extra dose administered [None]
  - Drug ineffective [None]
  - Device issue [None]
  - Device leakage [None]

NARRATIVE: CASE EVENT DATE: 20220814
